FAERS Safety Report 9531015 (Version 2)
Quarter: 2013Q3

REPORT INFORMATION
  Report Type: Spontaneous
  Country: US (occurrence: US)
  Receive Date: 20130918
  Receipt Date: 20130929
  Transmission Date: 20140515
  Serious: No
  Sender: FDA-Public Use
  Company Number: US-009507513-1309USA006446

PATIENT
  Sex: 0

DRUGS (2)
  1. PROPECIA [Suspect]
     Dosage: UNK
     Route: 048
  2. FINASTERIDE [Suspect]
     Dosage: UNK
     Route: 048

REACTIONS (2)
  - Alopecia [Unknown]
  - Drug ineffective [Unknown]
